FAERS Safety Report 9330961 (Version 1)
Quarter: 2013Q2

REPORT INFORMATION
  Report Type: Spontaneous
  Country: US (occurrence: US)
  Receive Date: 20130605
  Receipt Date: 20130605
  Transmission Date: 20140414
  Serious: No
  Sender: FDA-Public Use
  Company Number: US-009507513-1305USA017162

PATIENT
  Sex: Male

DRUGS (3)
  1. JANUVIA [Suspect]
     Indication: DIABETES MELLITUS
     Dosage: 50 MG, QD
     Dates: start: 2012
  2. ATENOLOL [Concomitant]
  3. DIURETIC (UNSPECIFIED) [Concomitant]

REACTIONS (6)
  - Pulmonary oedema [Unknown]
  - Skin oedema [Unknown]
  - Joint swelling [Unknown]
  - Haemoglobin increased [Unknown]
  - Dyspnoea [Unknown]
  - Wrong technique in drug usage process [Unknown]
